FAERS Safety Report 20206503 (Version 1)
Quarter: 2021Q4

REPORT INFORMATION
  Report Type: Spontaneous
  Country: IT (occurrence: IT)
  Receive Date: 20211220
  Receipt Date: 20211220
  Transmission Date: 20220303
  Serious: Yes (Life-Threatening, Hospitalization, Other)
  Sender: FDA-Public Use
  Company Number: IT-MYLANLABS-2021M1094024

PATIENT
  Age: 41 Year
  Sex: Female

DRUGS (3)
  1. GEMCITABINE [Suspect]
     Active Substance: GEMCITABINE
     Indication: Ovarian epithelial cancer
     Dosage: 1000 MILLIGRAM/SQ. METER, CYCLE, ON DAYS 1, 8 AND 15 IN A 28-DAY CYCLE
     Route: 065
     Dates: start: 201909, end: 202001
  2. PACLITAXEL [Suspect]
     Active Substance: PACLITAXEL
     Indication: Ovarian epithelial cancer
     Dosage: 175 MILLIGRAM/SQ. METER, CYCLE
     Route: 065
     Dates: end: 201904
  3. CARBOPLATIN [Suspect]
     Active Substance: CARBOPLATIN
     Indication: Ovarian epithelial cancer
     Dosage: UNK UNK, CYCLE
     Route: 065
     Dates: start: 201904

REACTIONS (2)
  - Congestive cardiomyopathy [Recovering/Resolving]
  - Drug ineffective [Unknown]

NARRATIVE: CASE EVENT DATE: 20190101
